FAERS Safety Report 12838782 (Version 1)
Quarter: 2016Q4

REPORT INFORMATION
  Report Type: Spontaneous
  Country: US (occurrence: US)
  Receive Date: 20161011
  Receipt Date: 20161011
  Transmission Date: 20170207
  Serious: Yes (Disabling)
  Sender: FDA-Public Use
  Company Number: None

PATIENT
  Age: 34 Year
  Sex: Female
  Weight: 108.86 kg

DRUGS (1)
  1. PARAGARD T 380A [Suspect]
     Active Substance: COPPER

REACTIONS (7)
  - Quality of life decreased [None]
  - Complication of device removal [None]
  - Device issue [None]
  - Vaginal haemorrhage [None]
  - Pain [None]
  - Embedded device [None]
  - Bowel movement irregularity [None]

NARRATIVE: CASE EVENT DATE: 20160902
